FAERS Safety Report 20407139 (Version 1)
Quarter: 2022Q1

REPORT INFORMATION
  Report Type: Spontaneous
  Country: US (occurrence: None)
  Receive Date: 20220131
  Receipt Date: 20220131
  Transmission Date: 20220423
  Serious: No
  Sender: FDA-Public Use
  Company Number: None

PATIENT
  Sex: Female

DRUGS (1)
  1. VERZENIO [Suspect]
     Active Substance: ABEMACICLIB
     Indication: Breast cancer female
     Dosage: OTHER QUANTITY : 1 TABLET;?FREQUENCY : TWICE A DAY;?
     Route: 048
     Dates: start: 202107

REACTIONS (5)
  - Stomatitis [None]
  - Oral mucosal erythema [None]
  - Mouth ulceration [None]
  - Oral pain [None]
  - Hypophagia [None]
